FAERS Safety Report 8743678 (Version 2)
Quarter: 2013Q4

REPORT INFORMATION
  Report Type: Spontaneous
  Country: US (occurrence: US)
  Receive Date: 20120824
  Receipt Date: 20131101
  Transmission Date: 20140711
  Serious: No
  Sender: FDA-Public Use
  Company Number: US-009507513-1208USA008464

PATIENT
  Sex: Female

DRUGS (3)
  1. IMPLANON [Suspect]
     Indication: CONTRACEPTION
     Dosage: UNK
     Route: 059
     Dates: start: 20101112
  2. LEXAPRO [Concomitant]
  3. NEURONTIN [Concomitant]

REACTIONS (3)
  - Menorrhagia [Not Recovered/Not Resolved]
  - Device dislocation [Not Recovered/Not Resolved]
  - Implant site pruritus [Not Recovered/Not Resolved]
